FAERS Safety Report 6198489-3 (Version None)
Quarter: 2009Q2

REPORT INFORMATION
  Report Type: 
  Country: None (occurrence: None)
  Receive Date: 20090521
  Receipt Date: 20090514
  Transmission Date: 20091009
  Serious: Yes (Other)
  Sender: FDA-Public Use
  Company Number: PHHY2009JP19260

PATIENT
  Sex: Male
  Weight: 62 kg

DRUGS (14)
  1. ICL670A ICL+DISTAB [Suspect]
     Indication: IRON OVERLOAD
     Dosage: 625 MG/DAY
     Route: 048
     Dates: start: 20080616, end: 20080627
  2. ICL670A ICL+DISTAB [Suspect]
     Dosage: 625 MG/DAY
     Route: 048
     Dates: start: 20080922, end: 20081006
  3. DESFERAL [Concomitant]
     Dosage: UNK
     Route: 042
     Dates: start: 20070901, end: 20080401
  4. AMNOLAKE [Concomitant]
     Indication: ACUTE PROMYELOCYTIC LEUKAEMIA
     Dosage: 10 MG, UNK
     Route: 048
     Dates: start: 20080602, end: 20080627
  5. IDARUBICIN HYDROCHLORIDE [Concomitant]
     Indication: ACUTE PROMYELOCYTIC LEUKAEMIA
     Dosage: 20 MG, UNK
     Route: 042
     Dates: start: 20080605, end: 20080606
  6. ENDOXAN [Concomitant]
     Indication: ACUTE PROMYELOCYTIC LEUKAEMIA
     Dosage: 3600 MG, UNK
     Route: 042
     Dates: start: 20080702, end: 20080703
  7. METHOTREXATE [Concomitant]
     Indication: ACUTE PROMYELOCYTIC LEUKAEMIA
     Dosage: 17 MG, UNK
     Route: 042
     Dates: start: 20080705
  8. METHOTREXATE [Concomitant]
     Dosage: 12 MG, UNK
     Route: 042
  9. METHOTREXATE [Concomitant]
     Dosage: 12 MG, UNK
     Route: 042
     Dates: end: 20080710
  10. TACROLIMUS [Concomitant]
     Indication: ACUTE PROMYELOCYTIC LEUKAEMIA
     Dosage: 1.9 MG, UNK
     Route: 048
     Dates: start: 20080703, end: 20080916
  11. DIFLUCAN [Concomitant]
     Indication: INFECTION PROPHYLAXIS
     Dosage: 400 MG, UNK
     Route: 048
     Dates: start: 20080627
  12. ZOVIRAX [Concomitant]
     Indication: INFECTION PROPHYLAXIS
     Dosage: 1000 MG, UNK
     Route: 048
     Dates: start: 20080627, end: 20080807
  13. CIPROXAN [Concomitant]
     Indication: INFECTION PROPHYLAXIS
     Dosage: 600 MG, UNK
     Route: 048
     Dates: start: 20080627, end: 20080711
  14. NEU-UP [Concomitant]
     Indication: ACUTE PROMYELOCYTIC LEUKAEMIA
     Dosage: 500 MG, UNK
     Route: 042
     Dates: start: 20080709, end: 20080725

REACTIONS (5)
  - AGRANULOCYTOSIS [None]
  - DIARRHOEA [None]
  - HAEMOGLOBIN DECREASED [None]
  - PANCYTOPENIA [None]
  - STEM CELL TRANSPLANT [None]
